FAERS Safety Report 4866864-2 (Version None)
Quarter: 2005Q4

REPORT INFORMATION
  Report Type: 
  Country: None (occurrence: None)
  Receive Date: 20051222
  Receipt Date: 20051207
  Transmission Date: 20060501
  Serious: Yes (Hospitalization, Other)
  Sender: FDA-Public Use
  Company Number: CA200512001574

PATIENT
  Age: 67 Year
  Sex: Female

DRUGS (16)
  1. FORTEO [Suspect]
     Indication: OSTEOPOROSIS
     Dosage: 20 UG, DAILY (1/D),
     Dates: start: 20050411
  2. FORTEO PEN (250MCG/ML) (FORTEO PEN 250MCG/ML (3ML)) PEN, DISPOSABLE [Concomitant]
  3. CARDIZEM [Concomitant]
  4. IMDUR [Concomitant]
  5. NITRO (GLYCERYL TRINITRATE) [Concomitant]
  6. VITAMIN D [Concomitant]
  7. CALCIUM (CALCIUM) [Concomitant]
  8. NEXIUM [Concomitant]
  9. ATIVAN [Concomitant]
  10. SINGULAIR [Concomitant]
  11. NOVASEN (ACETYLSALICYLIC ACID) [Concomitant]
  12. ATROVENT [Concomitant]
  13. VENTOLIN /00139501/ SALBUTAMOL) [Concomitant]
  14. FLOVENT [Concomitant]
  15. PREDNISONE [Concomitant]
  16. SUPEUDOL (OXYCODONE HYDROCHLORIDE) [Concomitant]

REACTIONS (7)
  - ARTHRALGIA [None]
  - COLLAPSE OF LUNG [None]
  - DECREASED APPETITE [None]
  - HOT FLUSH [None]
  - INJECTION SITE ERYTHEMA [None]
  - LUNG INFECTION [None]
  - OEDEMA PERIPHERAL [None]
